FAERS Safety Report 4312306-5 (Version None)
Quarter: 2004Q1

REPORT INFORMATION
  Report Type: 
  Country: None (occurrence: None)
  Receive Date: 20040305
  Receipt Date: 20040223
  Transmission Date: 20041129
  Serious: Yes (Hospitalization)
  Sender: FDA-Public Use
  Company Number: AU-GLAXOSMITHKLINE-B0324271A

PATIENT
  Sex: Female

DRUGS (10)
  1. AVANDIA [Suspect]
     Route: 048
  2. FRUSEMIDE [Concomitant]
  3. POTASSIUM [Concomitant]
  4. BACLOFEN [Concomitant]
  5. METFORMIN [Concomitant]
  6. MORPHINE [Concomitant]
     Dosage: 10MG THREE TIMES PER DAY
  7. PARACETAMOL [Concomitant]
  8. SALBUTAMOL [Concomitant]
  9. COLOXYL WITH SENNA [Concomitant]
  10. OMEPRAZOLE [Concomitant]

REACTIONS (3)
  - COLD SWEAT [None]
  - FEELING ABNORMAL [None]
  - HYPERGLYCAEMIA [None]
